FAERS Safety Report 5221633-9 (Version None)
Quarter: 2007Q1

REPORT INFORMATION
  Report Type: 
  Country: None (occurrence: None)
  Receive Date: 20070129
  Receipt Date: 20070117
  Transmission Date: 20070707
  Serious: Yes (Hospitalization)
  Sender: FDA-Public Use
  Company Number: PHBS2006JP17916

PATIENT
  Age: 1 Day
  Sex: Female
  Weight: 2.684 kg

DRUGS (1)
  1. DIOVAN [Suspect]
     Route: 064

REACTIONS (12)
  - BETA 2 MICROGLOBULIN URINE INCREASED [None]
  - BLOOD ALDOSTERONE INCREASED [None]
  - BLOOD CREATININE INCREASED [None]
  - BLOOD UREA INCREASED [None]
  - DRUG EXPOSURE DURING PREGNANCY [None]
  - ECHOGRAPHY ABNORMAL [None]
  - GENERALISED OEDEMA [None]
  - KIDNEY ENLARGEMENT [None]
  - POLYURIA [None]
  - RENIN INCREASED [None]
  - RESPIRATORY DISORDER [None]
  - WEIGHT DECREASE NEONATAL [None]
